FAERS Safety Report 6986493-4 (Version None)
Quarter: 2010Q3

REPORT INFORMATION
  Report Type: 
  Country: None (occurrence: None)
  Receive Date: 20100913
  Receipt Date: 20100827
  Transmission Date: 20110219
  Serious: Yes (Hospitalization)
  Sender: FDA-Public Use
  Company Number: 2009000165

PATIENT
  Age: 59 Year
  Sex: Female
  Weight: 76 kg

DRUGS (9)
  1. ERLOTINIB HYDROCHLORIDE [Suspect]
     Indication: NON-SMALL CELL LUNG CANCER
     Dosage: ORAL
     Route: 048
     Dates: start: 20080429
  2. PLACEBO (PLACEBO) [Suspect]
     Indication: NON-SMALL CELL LUNG CANCER
     Dates: start: 20080428
  3. AMARYL [Concomitant]
  4. MAGNESIUM (MAGNESIUM) [Concomitant]
  5. TRAMADOL HCL [Concomitant]
  6. KETOPROFEN [Concomitant]
  7. OMEPRAZOLE [Concomitant]
  8. TORECAN [Concomitant]
  9. METFORMIN HCL [Concomitant]

REACTIONS (6)
  - FATIGUE [None]
  - HYPOMAGNESAEMIA [None]
  - MALIGNANT NEOPLASM PROGRESSION [None]
  - NAUSEA [None]
  - NON-SMALL CELL LUNG CANCER METASTATIC [None]
  - VOMITING [None]
